FAERS Safety Report 14673491 (Version 2)
Quarter: 2018Q2

REPORT INFORMATION
  Report Type: Other
  Country: CA (occurrence: CA)
  Receive Date: 20180323
  Receipt Date: 20180422
  Transmission Date: 20180711
  Serious: Yes (Other)
  Sender: FDA-Public Use
  Company Number: CA-APOTEX-2018AP008063

PATIENT
  Age: 22 Year
  Sex: Female
  Weight: 98 kg

DRUGS (3)
  1. SYMBICORT [Suspect]
     Active Substance: BUDESONIDE\FORMOTEROL FUMARATE DIHYDRATE
     Indication: OBSTRUCTIVE AIRWAYS DISORDER
     Dosage: 1 DF, BID
     Route: 065
  2. SALBUTAMOL [Suspect]
     Active Substance: ALBUTEROL
     Indication: OBSTRUCTIVE AIRWAYS DISORDER
     Dosage: UNK
     Route: 065
  3. SYMBICORT [Suspect]
     Active Substance: BUDESONIDE\FORMOTEROL FUMARATE DIHYDRATE
     Dosage: 200 ?G, QID
     Route: 065

REACTIONS (5)
  - Wheezing [Unknown]
  - Gait disturbance [Unknown]
  - Hypoxia [Unknown]
  - Cough [Unknown]
  - Dyspnoea [Unknown]
